FAERS Safety Report 19317348 (Version 2)
Quarter: 2021Q3

REPORT INFORMATION
  Report Type: Report from Study
  Country: US (occurrence: US)
  Receive Date: 20210527
  Receipt Date: 20210702
  Transmission Date: 20211014
  Serious: Yes (Hospitalization)
  Sender: FDA-Public Use
  Company Number: US-BAYER-2021-145039

PATIENT
  Age: 63 Year
  Sex: Female
  Weight: 68.03 kg

DRUGS (3)
  1. STIVARGA [Suspect]
     Active Substance: REGORAFENIB
     Indication: COLORECTAL CANCER METASTATIC
     Dosage: DAILY DOSE 80 MG
     Dates: start: 20210426, end: 20210508
  2. VANCOMYCIN [Suspect]
     Active Substance: VANCOMYCIN
     Dosage: UNK
  3. STIVARGA [Suspect]
     Active Substance: REGORAFENIB
     Indication: COLON CANCER

REACTIONS (6)
  - Vascular device infection [Unknown]
  - Infection [Unknown]
  - Pyrexia [Unknown]
  - Rash [Unknown]
  - Confusional state [Unknown]
  - Off label use [None]

NARRATIVE: CASE EVENT DATE: 20210426
